FAERS Safety Report 8915837 (Version 2)
Quarter: 2013Q1

REPORT INFORMATION
  Report Type: Spontaneous
  Country: US (occurrence: US)
  Receive Date: 20121119
  Receipt Date: 20130108
  Transmission Date: 20140127
  Serious: Yes (Other)
  Sender: FDA-Public Use
  Company Number: US-PFIZER INC-2012288234

PATIENT
  Age: 28 Year
  Sex: Female

DRUGS (6)
  1. GEODON [Suspect]
     Indication: BIPOLAR DISORDER
     Dosage: 20MG IN MORNING
     Route: 048
     Dates: start: 20121114
  2. GEODON [Suspect]
     Indication: ADJUSTMENT DISORDER WITH DEPRESSED MOOD
     Dosage: 80 MG, 1X/DAY AT NIGHT
     Route: 048
  3. LAMICTAL [Concomitant]
     Dosage: 200 MG, 1X/DAY AT NIGHT
     Route: 048
  4. TRAZODONE [Concomitant]
     Dosage: 100 MG, 1X/DAY AT NIGHT
     Route: 048
  5. LORAZEPAM [Concomitant]
     Dosage: 1 MG, AT NIGHT AS NEEDED
     Route: 048
  6. LAMOTRIGINE [Concomitant]
     Dosage: 200 MG, 1 QHS
     Route: 048

REACTIONS (4)
  - Sedation [Unknown]
  - Flat affect [Unknown]
  - Disturbance in attention [Unknown]
  - Feeling abnormal [Unknown]
